FAERS Safety Report 12736450 (Version 1)
Quarter: 2016Q3

REPORT INFORMATION
  Report Type: Spontaneous
  Country: US (occurrence: US)
  Receive Date: 20160913
  Receipt Date: 20160913
  Transmission Date: 20161109
  Serious: Yes (Other)
  Sender: FDA-Public Use
  Company Number: US-DRREDDYS-USA/USA/16/0083051

PATIENT
  Sex: Female

DRUGS (2)
  1. HABITROL [Suspect]
     Active Substance: NICOTINE
     Indication: SMOKING CESSATION THERAPY
     Route: 062
  2. LIQUID NICOTINE VAPOR UP [Suspect]
     Active Substance: NICOTINE
     Indication: NICOTINE DEPENDENCE
     Route: 065

REACTIONS (4)
  - Transient ischaemic attack [Not Recovered/Not Resolved]
  - Product quality issue [Unknown]
  - Overdose [Unknown]
  - Drug ineffective [Unknown]
